FAERS Safety Report 15240410 (Version 8)
Quarter: 2019Q3

REPORT INFORMATION
  Report Type: Spontaneous
  Country: PL (occurrence: PL)
  Receive Date: 20180804
  Receipt Date: 20190730
  Transmission Date: 20191004
  Serious: Yes (Hospitalization, Other)
  Sender: FDA-Public Use
  Company Number: PL-JNJFOC-20180731667

PATIENT
  Age: 61 Year
  Sex: Male

DRUGS (18)
  1. MYCOPHENOLATE MOFETIL. [Suspect]
     Active Substance: MYCOPHENOLATE MOFETIL
     Indication: RENAL TRANSPLANT
     Dosage: 1500 MILLIGRAM DAILY
     Route: 065
  2. MYCOPHENOLATE MOFETIL. [Suspect]
     Active Substance: MYCOPHENOLATE MOFETIL
     Indication: IMMUNOSUPPRESSION
     Route: 065
     Dates: start: 201710, end: 201710
  3. PREDNISOLONE. [Suspect]
     Active Substance: PREDNISOLONE
     Indication: IMMUNOSUPPRESSION
     Dosage: UNK
     Route: 065
     Dates: start: 201710, end: 201710
  4. MORPHINE SULFATE. [Suspect]
     Active Substance: MORPHINE SULFATE
     Indication: IMMUNOSUPPRESSION
     Route: 065
     Dates: start: 201710
  5. VITAMIN D [Suspect]
     Active Substance: VITAMIN D NOS
     Indication: IMMUNOSUPPRESSION
     Route: 065
  6. TACROLIMUS. [Suspect]
     Active Substance: TACROLIMUS
     Indication: IMMUNOSUPPRESSION
     Dosage: 10 MILLIGRAM DAILY
     Route: 065
     Dates: start: 201710, end: 201710
  7. CEFTRIAXONE. [Suspect]
     Active Substance: CEFTRIAXONE
     Indication: IMMUNOSUPPRESSION
     Route: 065
  8. MORPHINE SULFATE. [Suspect]
     Active Substance: MORPHINE SULFATE
     Indication: PAIN
  9. CALCIUM [Suspect]
     Active Substance: CALCIUM
     Indication: IMMUNOSUPPRESSION
     Route: 065
  10. TACROLIMUS. [Suspect]
     Active Substance: TACROLIMUS
     Indication: PRODUCT USED FOR UNKNOWN INDICATION
     Route: 065
     Dates: start: 201710, end: 201710
  11. TACROLIMUS. [Suspect]
     Active Substance: TACROLIMUS
     Route: 065
     Dates: start: 201710, end: 201710
  12. SIMULECT [Suspect]
     Active Substance: BASILIXIMAB
     Indication: IMMUNOSUPPRESSION
     Route: 065
     Dates: start: 201710
  13. SULFAMETHOXAZOLE [Suspect]
     Active Substance: SULFAMETHOXAZOLE
     Indication: IMMUNOSUPPRESSION
     Route: 065
  14. FUROSEMIDE. [Suspect]
     Active Substance: FUROSEMIDE
     Indication: PRODUCT USED FOR UNKNOWN INDICATION
     Route: 065
  15. PARACETAMOL [Suspect]
     Active Substance: ACETAMINOPHEN
     Indication: PAIN
     Route: 065
     Dates: start: 201710
  16. TACROLIMUS. [Suspect]
     Active Substance: TACROLIMUS
     Indication: RENAL TRANSPLANT
     Dosage: 2 MILLIGRAM DAILY
     Route: 065
     Dates: start: 201710
  17. PREDNISOLONE. [Suspect]
     Active Substance: PREDNISOLONE
     Indication: RENAL TRANSPLANT
     Route: 065
     Dates: start: 201710
  18. SIMULECT [Suspect]
     Active Substance: BASILIXIMAB
     Indication: RENAL TRANSPLANT
     Dosage: INITIAL DOSE OF 14 MG/DAY
     Route: 065

REACTIONS (5)
  - Pancreatitis acute [Recovered/Resolved]
  - Sphincter of Oddi dysfunction [Unknown]
  - Diarrhoea [Recovered/Resolved]
  - Abdominal pain [Recovered/Resolved]
  - Delayed graft function [Unknown]

NARRATIVE: CASE EVENT DATE: 201710
